FAERS Safety Report 8840232 (Version 1)
Quarter: 2012Q4

REPORT INFORMATION
  Report Type: 
  Country: US (occurrence: US)
  Receive Date: 20121015
  Receipt Date: 20121015
  Transmission Date: 20130627
  Serious: Yes (Hospitalization, Disabling)
  Sender: FDA-Public Use
  Company Number: US-GLAXOSMITHKLINE-A0775971A

PATIENT
  Sex: Male
  Weight: 129.5 kg

DRUGS (1)
  1. AVANDIA [Suspect]
     Indication: TYPE 2 DIABETES MELLITUS
     Dosage: 8MG Twice per day
     Route: 048

REACTIONS (2)
  - Cardiac failure congestive [Not Recovered/Not Resolved]
  - Myocardial infarction [Unknown]
